FAERS Safety Report 5953548-2 (Version None)
Quarter: 2008Q4

REPORT INFORMATION
  Report Type: 
  Country: None (occurrence: None)
  Receive Date: 20081114
  Receipt Date: 20081014
  Transmission Date: 20090506
  Serious: No
  Sender: FDA-Public Use
  Company Number: US-BAYER-200835798NA

PATIENT
  Age: 30 Year
  Sex: Male
  Weight: 109 kg

DRUGS (1)
  1. ULTRAVIST 300 [Suspect]
     Indication: HEADACHE
     Dosage: TOTAL DAILY DOSE: 50 ML  UNIT DOSE: 50 ML
     Route: 042
     Dates: start: 20081013, end: 20081013

REACTIONS (1)
  - URTICARIA [None]
